FAERS Safety Report 23611711 (Version 1)
Quarter: 2024Q1

REPORT INFORMATION
  Report Type: Spontaneous
  Country: US (occurrence: None)
  Receive Date: 20240308
  Receipt Date: 20240308
  Transmission Date: 20240410
  Serious: Yes (Other)
  Sender: FDA-Public Use
  Company Number: 2024A055204

PATIENT
  Sex: Female

DRUGS (4)
  1. NEXIUM [Suspect]
     Active Substance: ESOMEPRAZOLE MAGNESIUM
     Indication: Product used for unknown indication
     Route: 042
  2. ABILIFY [Suspect]
     Active Substance: ARIPIPRAZOLE
     Indication: Product used for unknown indication
  3. DEPAKOTE [Suspect]
     Active Substance: DIVALPROEX SODIUM
     Indication: Mental disorder
  4. SUGAR DIABETES [Concomitant]

REACTIONS (7)
  - Exposure during pregnancy [Unknown]
  - Abortion [Unknown]
  - Drug dependence [Unknown]
  - Hernia [Unknown]
  - Drug hypersensitivity [Unknown]
  - Swelling face [Unknown]
  - Prescription drug used without a prescription [Unknown]
